FAERS Safety Report 6468172-5 (Version None)
Quarter: 2009Q4

REPORT INFORMATION
  Report Type: 
  Country: None (occurrence: None)
  Receive Date: 20091202
  Receipt Date: 20091123
  Transmission Date: 20100525
  Serious: Yes (Hospitalization)
  Sender: FDA-Public Use
  Company Number: FR-GENENTECH-295131

PATIENT
  Sex: Male
  Weight: 103 kg

DRUGS (6)
  1. RITUXIMAB [Suspect]
     Indication: MANTLE CELL LYMPHOMA
     Dosage: 700 MG, UNK
     Route: 041
     Dates: start: 20090612, end: 20090612
  2. DEXAMETHASONE TAB [Suspect]
     Indication: MANTLE CELL LYMPHOMA
     Dosage: 40 MG, UNK
     Route: 041
     Dates: start: 20090612, end: 20090615
  3. ARACYTINE [Suspect]
     Indication: MANTLE CELL LYMPHOMA
     Dosage: 8 G, UNK
     Route: 041
     Dates: start: 20090613, end: 20090613
  4. CISPLATIN [Suspect]
     Indication: MANTLE CELL LYMPHOMA
     Dosage: FORM: INTRAVENOUS INFUSION. DAY 1.
     Route: 042
     Dates: start: 20090612, end: 20090612
  5. ZELITREX [Concomitant]
     Indication: PROPHYLAXIS
     Dosage: UNK
     Route: 048
     Dates: start: 20090612
  6. SULFAMETHOXAZOLE AND TRIMETHOPRIM [Suspect]
     Indication: PROPHYLAXIS
     Dosage: UNK
     Route: 048
     Dates: start: 20090612, end: 20090626

REACTIONS (5)
  - NEUTROPENIA [None]
  - PYREXIA [None]
  - RASH [None]
  - TACHYCARDIA [None]
  - TACHYPNOEA [None]
